FAERS Safety Report 19677702 (Version 1)
Quarter: 2021Q3

REPORT INFORMATION
  Report Type: Report from Study
  Country: PK (occurrence: PK)
  Receive Date: 20210809
  Receipt Date: 20210809
  Transmission Date: 20211014
  Serious: Yes (Death)
  Sender: FDA-Public Use
  Company Number: NVSC2021PK179641

PATIENT
  Sex: Male
  Weight: 49 kg

DRUGS (1)
  1. TASIGNA [Suspect]
     Active Substance: NILOTINIB
     Indication: PHILADELPHIA POSITIVE CHRONIC MYELOID LEUKAEMIA
     Dosage: 200 MG(2+0+1)
     Route: 048
     Dates: start: 20200825

REACTIONS (1)
  - Cardio-respiratory arrest [Fatal]
